FAERS Safety Report 8579944-5 (Version None)
Quarter: 2012Q3

REPORT INFORMATION
  Report Type: 
  Country: None (occurrence: None)
  Receive Date: 20120808
  Receipt Date: 20120725
  Transmission Date: 20120928
  Serious: Yes (Other)
  Sender: FDA-Public Use
  Company Number: GB-ELI_LILLY_AND_COMPANY-GB201207008103

PATIENT
  Sex: Male

DRUGS (2)
  1. STRATTERA [Suspect]
     Dosage: 30 MG, UNKNOWN
     Dates: start: 20110322
  2. STRATTERA [Suspect]
     Dosage: 40 MG, QD

REACTIONS (10)
  - ARRHYTHMIA [None]
  - PALPITATIONS [None]
  - FUNCTIONAL GASTROINTESTINAL DISORDER [None]
  - HEART RATE INCREASED [None]
  - ABNORMAL BEHAVIOUR [None]
  - SELF INJURIOUS BEHAVIOUR [None]
  - LETHARGY [None]
  - BLADDER DISORDER [None]
  - DYSPNOEA [None]
  - ASPERGER'S DISORDER [None]
